FAERS Safety Report 5386759-8 (Version None)
Quarter: 2007Q3

REPORT INFORMATION
  Report Type: 
  Country: None (occurrence: None)
  Receive Date: 20070713
  Receipt Date: 20070703
  Transmission Date: 20080115
  Serious: Yes (Hospitalization)
  Sender: FDA-Public Use
  Company Number: US-ROCHE-505684

PATIENT
  Age: 17 Year
  Sex: Female

DRUGS (3)
  1. ACCUTANE [Suspect]
     Indication: ACNE
     Dosage: THE PATIENT WAS DISPENSED ACCUTANE 40 MG CAPSULE ON 15 MARCH 2007
     Route: 048
     Dates: start: 20070315
  2. CLARAVIS [Suspect]
     Indication: ACNE
     Dosage: THE PATIENT WAS DISPENSED ISOTRETINOIN ON 14 APRIL 2007
     Route: 048
     Dates: start: 20070414, end: 20070529
  3. CONTRACEPTIVE [Concomitant]
     Route: 048

REACTIONS (2)
  - ANGER [None]
  - SELF-INJURIOUS IDEATION [None]
